FAERS Safety Report 6640225-8 (Version None)
Quarter: 2010Q1

REPORT INFORMATION
  Report Type: 
  Country: None (occurrence: None)
  Receive Date: 20100318
  Receipt Date: 20100305
  Transmission Date: 20100710
  Serious: Yes (Death, Other)
  Sender: FDA-Public Use
  Company Number: US-ROCHE-689488

PATIENT
  Age: 67 Year
  Sex: Male

DRUGS (3)
  1. AVASTIN [Suspect]
     Dosage: RECEIVED IN A CLINICAL TRIAL
     Route: 042
     Dates: start: 20060301
  2. AVASTIN [Suspect]
     Dosage: 4 TREATMENTS
     Route: 042
  3. NEXAVAR [Concomitant]
     Route: 048
     Dates: start: 20060301

REACTIONS (9)
  - ABDOMINAL PAIN UPPER [None]
  - BRAIN NEOPLASM MALIGNANT [None]
  - CEREBROVASCULAR ACCIDENT [None]
  - COMA [None]
  - COUGH [None]
  - DEATH [None]
  - DISEASE PROGRESSION [None]
  - FATIGUE [None]
  - RASH [None]
